FAERS Safety Report 5602608-4 (Version None)
Quarter: 2008Q1

REPORT INFORMATION
  Report Type: 
  Country: None (occurrence: None)
  Receive Date: 20080125
  Receipt Date: 20080121
  Transmission Date: 20080703
  Serious: Yes (Hospitalization)
  Sender: FDA-Public Use
  Company Number: JP-AVENTIS-200810144GDDC

PATIENT
  Age: 73 Year
  Sex: Female

DRUGS (8)
  1. DESMOPRESSIN [Suspect]
     Indication: ENURESIS
     Route: 055
     Dates: start: 20071116
  2. RIZE                               /00624801/ [Suspect]
     Indication: PSYCHOSOMATIC DISEASE
     Dates: start: 20040422
  3. MUCOSTA [Suspect]
     Indication: GASTRITIS
     Route: 048
     Dates: start: 20040422
  4. BIOFERMIN [Suspect]
     Indication: DIARRHOEA
     Route: 048
     Dates: start: 20050815
  5. MAGLAX [Suspect]
     Indication: CONSTIPATION
     Route: 048
     Dates: start: 20050707
  6. COMBINATIONS OF VITAMINS [Suspect]
     Indication: PIGMENTATION DISORDER
     Route: 048
     Dates: start: 20061125
  7. THYRADIN [Suspect]
     Indication: THYROID DISORDER
     Route: 048
     Dates: start: 20070202
  8. HOCHUUEKKITOU [Suspect]
     Indication: MALAISE
     Route: 048
     Dates: start: 20060223

REACTIONS (1)
  - INTESTINAL ISCHAEMIA [None]
